FAERS Safety Report 6267780-4 (Version None)
Quarter: 2009Q3

REPORT INFORMATION
  Report Type: 
  Country: None (occurrence: None)
  Receive Date: 20090710
  Receipt Date: 20090701
  Transmission Date: 20100115
  Serious: Yes (Other)
  Sender: FDA-Public Use
  Company Number: GXKR2009GB07546

PATIENT
  Age: 60 Year
  Sex: Male

DRUGS (9)
  1. ITRACONAZOLE [Suspect]
     Indication: BRONCHOPULMONARY ASPERGILLOSIS ALLERGIC
     Dosage: 200 MG, BID, ORAL
     Route: 048
     Dates: start: 20080701, end: 20090301
  2. ANAESTHETICS (NO INGREDIENTS/SUBSTANCES) [Concomitant]
  3. CALCICHEW D3 (CALCIUM CARBONATE, COLECALCIFEROL) [Concomitant]
  4. MONTELUKAST SODIUM [Concomitant]
  5. PARACETAMOL (PARACETAMOL) [Concomitant]
  6. SALBUTAMOL (SALBUTAMOL) [Concomitant]
  7. ADVAIR HFA [Concomitant]
  8. TIOTROPIUM BROMIDE (TIOTROPIUM BROMIDE) [Concomitant]
  9. TRAMADOL HCL [Concomitant]

REACTIONS (2)
  - ADRENAL INSUFFICIENCY [None]
  - CUSHINGOID [None]
